FAERS Safety Report 5899526-3 (Version None)
Quarter: 2008Q3

REPORT INFORMATION
  Report Type: 
  Country: None (occurrence: None)
  Receive Date: 20080924
  Receipt Date: 20080910
  Transmission Date: 20090109
  Serious: Yes (Hospitalization)
  Sender: FDA-Public Use
  Company Number: 0234

PATIENT
  Age: 49 Year
  Sex: Male

DRUGS (2)
  1. INDOMETHACIN [Suspect]
     Indication: HYPERTENSION
     Dosage: RC, PO
     Route: 048
     Dates: start: 20080724, end: 20080731
  2. MANIDIPINE HYDROCHLORIDE [Concomitant]

REACTIONS (1)
  - RENAL FAILURE ACUTE [None]
